FAERS Safety Report 9537783 (Version 2)
Quarter: 2013Q3

REPORT INFORMATION
  Report Type: Spontaneous
  Country: US (occurrence: US)
  Receive Date: 20130919
  Receipt Date: 20130926
  Transmission Date: 20140515
  Serious: No
  Sender: FDA-Public Use
  Company Number: US-009507513-1309USA007509

PATIENT
  Sex: Male

DRUGS (1)
  1. LOTRIMIN AF SPRAY POWDER [Suspect]
     Indication: FUNGAL SKIN INFECTION
     Dosage: UNK, UNKNOWN
     Route: 061

REACTIONS (3)
  - Lung disorder [Unknown]
  - Dyspnoea [Unknown]
  - Product colour issue [Unknown]
